FAERS Safety Report 7987682-2 (Version None)
Quarter: 2011Q4

REPORT INFORMATION
  Report Type: 
  Country: None (occurrence: None)
  Receive Date: 20111216
  Receipt Date: 20110111
  Transmission Date: 20120403
  Serious: No
  Sender: FDA-Public Use
  Company Number: US-BRISTOL-MYERS SQUIBB COMPANY-15361173

PATIENT
  Age: 76 Year
  Sex: Female
  Weight: 78 kg

DRUGS (16)
  1. ASPIRIN [Concomitant]
  2. HUMULIN R [Concomitant]
  3. ASPIRIN [Concomitant]
  4. ABILIFY [Suspect]
     Dosage: INITIAL DOSE 2MG A WK INCREASED TO 2.5MG
     Dates: start: 20101101
  5. CALCIUM [Concomitant]
  6. ARIMIDEX [Concomitant]
  7. ZOMETA [Concomitant]
     Indication: BONE NEOPLASM MALIGNANT
     Route: 042
  8. HYDRALAZINE HCL [Concomitant]
  9. CENTRUM [Concomitant]
  10. LOVASTATIN [Concomitant]
  11. LEVOTHYROXINE SODIUM [Concomitant]
  12. SENOKOT [Concomitant]
  13. MILK OF MAGNESIA TAB [Concomitant]
  14. GLIPIZIDE [Concomitant]
  15. LANTUS [Concomitant]
  16. VITAMIN B-12 [Concomitant]

REACTIONS (4)
  - RESTLESSNESS [None]
  - CONSTIPATION [None]
  - AMNESIA [None]
  - BLOOD GLUCOSE INCREASED [None]
